FAERS Safety Report 23565095 (Version 1)
Quarter: 2024Q1

REPORT INFORMATION
  Report Type: Spontaneous
  Country: RU (occurrence: RU)
  Receive Date: 20240226
  Receipt Date: 20240226
  Transmission Date: 20240410
  Serious: Yes (Other)
  Sender: FDA-Public Use
  Company Number: None

PATIENT

DRUGS (23)
  1. ONCASPAR [Suspect]
     Active Substance: PEGASPARGASE
     Indication: Lymphocytic leukaemia
     Dosage: UNK
     Route: 042
     Dates: start: 20231013
  2. ONCASPAR [Suspect]
     Active Substance: PEGASPARGASE
     Dosage: 890 IU
     Route: 042
     Dates: start: 20240127, end: 20240210
  3. DEXAMETHASONE [Concomitant]
     Active Substance: DEXAMETHASONE
     Indication: Lymphocytic leukaemia
     Dosage: UNK UNK, UNKNOWN
     Route: 048
     Dates: start: 20231110, end: 20240124
  4. VINCRISTINE RONC [Concomitant]
     Indication: Lymphocytic leukaemia
     Dosage: UNK UNK, UNKNOWN
     Route: 042
     Dates: start: 20231115, end: 20240119
  5. METHOTREXATE [Concomitant]
     Active Substance: METHOTREXATE
     Indication: Lymphocytic leukaemia
     Dosage: UNK UNK, UNKNOWN
     Route: 008
     Dates: start: 20231115, end: 20231222
  6. METHOTREXATE [Concomitant]
     Active Substance: METHOTREXATE
     Dosage: UNK UNK, UNKNOWN
     Route: 008
     Dates: start: 20231122, end: 20240209
  7. CYTARABINE [Concomitant]
     Active Substance: CYTARABINE
     Indication: Lymphocytic leukaemia
     Dosage: UNK UNK, UNKNOWN
     Route: 008
     Dates: start: 20231115, end: 20231222
  8. PREDNISOLONE [Concomitant]
     Active Substance: PREDNISOLONE
     Indication: Lymphocytic leukaemia
     Dosage: UNK UNK, UNKNOWN
     Route: 037
     Dates: start: 20231115, end: 20231222
  9. MERCAPTOPURINE [Concomitant]
     Active Substance: MERCAPTOPURINE
     Indication: Lymphocytic leukaemia
     Dosage: UNK UNK, UNKNOWN
     Route: 048
     Dates: start: 20231122, end: 20240209
  10. Methortrit [Concomitant]
     Indication: Lymphocytic leukaemia
     Dosage: UNK UNK, UNKNOWN
     Route: 030
     Dates: start: 20231201, end: 20231201
  11. Almagel [Concomitant]
     Indication: Prophylaxis against gastrointestinal ulcer
     Dosage: UNK UNK, UNKNOWN
     Route: 048
     Dates: start: 20231110, end: 20231115
  12. Co-trimoxazole sti [Concomitant]
     Indication: Antibiotic prophylaxis
     Dosage: UNK UNK, UNKNOWN
     Route: 048
     Dates: start: 20231110, end: 20240210
  13. URSODIOL [Concomitant]
     Active Substance: URSODIOL
     Indication: Drug-induced liver injury
     Dosage: UNK UNK, UNKNOWN
     Route: 048
     Dates: start: 20231110, end: 20231116
  14. AMBROXOL [Concomitant]
     Active Substance: AMBROXOL
     Indication: Bronchitis
     Dosage: UNK UNK, UNKNOWN
     Route: 048
     Dates: start: 20231110, end: 20231113
  15. FLUCONAZOLE [Concomitant]
     Active Substance: FLUCONAZOLE
     Indication: Aphthous ulcer
     Dosage: UNK UNK, UNKNOWN
     Route: 048
     Dates: start: 20231113, end: 20231116
  16. ONDANSETRON [Concomitant]
     Active Substance: ONDANSETRON
     Indication: Prophylaxis of nausea and vomiting
     Dosage: UNK UNK, UNKNOWN
     Route: 042
     Dates: start: 20231115, end: 20240210
  17. URSODIOL [Concomitant]
     Active Substance: URSODIOL
     Indication: Drug-induced liver injury
     Dosage: UNK UNK, UNKNOWN
     Route: 048
     Dates: start: 20231120, end: 20240210
  18. ASPARAGINASE [Concomitant]
     Active Substance: ASPARAGINASE
     Indication: Product used for unknown indication
     Dosage: UNK UNK, UNKNOWN
     Route: 030
     Dates: start: 20231123, end: 20240102
  19. AQUADETRIM [Concomitant]
     Indication: Osteoporosis prophylaxis
     Dosage: UNK UNK, UNKNOWN
     Route: 048
     Dates: start: 20231124, end: 20231211
  20. ACETAMINOPHEN [Concomitant]
     Active Substance: ACETAMINOPHEN
     Indication: Headache
     Dosage: UNK UNK, UNKNOWN
     Route: 048
     Dates: start: 20231223, end: 20231223
  21. Azarexon [Concomitant]
     Indication: Hyperthermia
     Dosage: UNK UNK, UNKNOWN
     Route: 042
     Dates: start: 20231223, end: 20231225
  22. LORATADINE [Concomitant]
     Active Substance: LORATADINE
     Indication: Rash
     Dosage: UNK UNK, UNKNOWN
     Route: 048
     Dates: start: 20240102, end: 20240102
  23. PANCREATIN [Concomitant]
     Active Substance: PANCRELIPASE
     Indication: Pancreatic failure
     Dosage: UNK UNK, UNKNOWN
     Route: 048
     Dates: start: 20240127, end: 20240131

REACTIONS (4)
  - Urticaria [Recovered/Resolved]
  - Nausea [Recovered/Resolved]
  - Vomiting [Recovered/Resolved]
  - Abdominal pain [Recovered/Resolved]

NARRATIVE: CASE EVENT DATE: 20240210
